FAERS Safety Report 4333822-6 (Version None)
Quarter: 2004Q2

REPORT INFORMATION
  Report Type: 
  Country: None (occurrence: None)
  Receive Date: 20040402
  Receipt Date: 20040326
  Transmission Date: 20050107
  Serious: Yes (Death)
  Sender: FDA-Public Use
  Company Number: 2003AP04454

PATIENT
  Age: 69 Year
  Sex: Male

DRUGS (1)
  1. IRESSA [Suspect]
     Indication: LUNG NEOPLASM MALIGNANT
     Dosage: 250 MG DAILY PO
     Route: 048
     Dates: start: 20031121, end: 20031211

REACTIONS (4)
  - ACUTE RESPIRATORY FAILURE [None]
  - LUNG DISORDER [None]
  - MULTI-ORGAN FAILURE [None]
  - PYREXIA [None]
